FAERS Safety Report 4719928-8 (Version None)
Quarter: 2005Q3

REPORT INFORMATION
  Report Type: 
  Country: None (occurrence: None)
  Receive Date: 20050721
  Receipt Date: 20050127
  Transmission Date: 20060218
  Serious: No
  Sender: FDA-Public Use
  Company Number: US-GLAXOSMITHKLINE-A0542642A

PATIENT
  Age: 66 Year
  Sex: Female

DRUGS (4)
  1. AVANDIA [Suspect]
     Dosage: 4MG PER DAY
     Route: 048
  2. LORAZEPAM [Suspect]
     Dosage: 4MG PER DAY
     Dates: start: 20041230
  3. SYNTHROID [Concomitant]
  4. ALBUTEROL [Concomitant]

REACTIONS (1)
  - PALPITATIONS [None]
